FAERS Safety Report 9804335 (Version 1)
Quarter: 2014Q1

REPORT INFORMATION
  Report Type: Spontaneous
  Country: CH (occurrence: None)
  Receive Date: 20140106
  Receipt Date: 20140106
  Transmission Date: 20141002
  Serious: Yes (Hospitalization)
  Sender: FDA-Public Use
  Company Number: 2013120077

PATIENT
  Age: 84 Year
  Sex: Female

DRUGS (5)
  1. TOREM (TORASEMIDE) [Suspect]
     Indication: ESSENTIAL HYPERTENSION
     Dosage: 10 MG 5 IN 1 D
     Route: 048
     Dates: start: 201304
  2. XARELTO (RIVAROXABAN) [Suspect]
     Indication: ATRIAL FIBRILLATION
     Route: 048
     Dates: start: 201304
  3. SORTIS (ATORVASTATIN CALCIUM) [Suspect]
     Indication: PROPHYLAXIS
     Route: 048
     Dates: start: 201303
  4. PERINDOPRIL (PERINDOPRIL) [Suspect]
     Indication: ESSENTIAL HYPERTENSION
     Route: 048
     Dates: start: 201304
  5. LASIX (FUROSEMIDE) [Suspect]
     Indication: ESSENTIAL HYPERTENSION
     Dates: start: 201303, end: 201304

REACTIONS (7)
  - Cerebral infarction [None]
  - Thrombocytopenia [None]
  - Haemorrhage intracranial [None]
  - Decubitus ulcer [None]
  - Polymyalgia rheumatica [None]
  - Restless legs syndrome [None]
  - Renal failure chronic [None]
